FAERS Safety Report 24525086 (Version 3)
Quarter: 2024Q4

REPORT INFORMATION
  Report Type: Spontaneous
  Country: US (occurrence: US)
  Receive Date: 20241019
  Receipt Date: 20241218
  Transmission Date: 20250115
  Serious: Yes (Other)
  Sender: SANOFI AVENTIS
  Company Number: US-SANOFI-02236254

PATIENT
  Age: 41 Year
  Sex: Female
  Weight: 131 kg

DRUGS (6)
  1. TZIELD [Suspect]
     Active Substance: TEPLIZUMAB-MZWV
     Indication: Type 1 diabetes mellitus
     Dosage: 110 UG, 1X
     Route: 042
     Dates: start: 20240923, end: 20240923
  2. TZIELD [Suspect]
     Active Substance: TEPLIZUMAB-MZWV
     Dosage: 210 UG, 1X
     Route: 042
     Dates: start: 20240924, end: 20240924
  3. TZIELD [Suspect]
     Active Substance: TEPLIZUMAB-MZWV
     Dosage: 430 UG, 1X
     Route: 042
     Dates: start: 20240925, end: 20240925
  4. TZIELD [Suspect]
     Active Substance: TEPLIZUMAB-MZWV
     Dosage: 860 UG, 1X
     Route: 042
     Dates: start: 20240926, end: 20240926
  5. TZIELD [Suspect]
     Active Substance: TEPLIZUMAB-MZWV
     Dosage: 1761 UG, QD
     Route: 042
     Dates: start: 20240927, end: 20241006
  6. IBUPROFEN [Concomitant]
     Active Substance: IBUPROFEN
     Indication: Premedication
     Dosage: 400 MG, QD
     Dates: start: 20240923, end: 20241006

REACTIONS (7)
  - Cytokine release syndrome [Recovered/Resolved]
  - Nausea [Recovered/Resolved]
  - Pyrexia [Recovered/Resolved]
  - Pain [Recovered/Resolved]
  - Chills [Recovered/Resolved]
  - Vomiting [Recovered/Resolved]
  - Diarrhoea [Recovered/Resolved]

NARRATIVE: CASE EVENT DATE: 20240923
